FAERS Safety Report 17063992 (Version 2)
Quarter: 2020Q3

REPORT INFORMATION
  Report Type: Report from Study
  Country: BR (occurrence: BR)
  Receive Date: 20191122
  Receipt Date: 20200318
  Transmission Date: 20201104
  Serious: Yes (Life-Threatening, Other)
  Sender: FDA-Public Use
  Company Number: PHHY2019BR086381

PATIENT
  Age: 54 Year
  Sex: Female

DRUGS (6)
  1. RIVOTRIL [Suspect]
     Active Substance: CLONAZEPAM
     Indication: PRODUCT USED FOR UNKNOWN INDICATION
     Dosage: 20 OT, UNK (20 DROPS)
     Route: 065
  2. XOLAIR [Suspect]
     Active Substance: OMALIZUMAB
     Indication: URTICARIA
     Dosage: 150 MG, UNK
     Route: 065
     Dates: start: 20190319
  3. CYCLOSPORINE. [Suspect]
     Active Substance: CYCLOSPORINE
     Indication: PRODUCT USED FOR UNKNOWN INDICATION
     Route: 065
  4. XOLAIR [Suspect]
     Active Substance: OMALIZUMAB
     Dosage: 450 MG, (EVERY 15 DAYS, BEING ONE PEN OF 150MG)QMO
     Route: 065
     Dates: start: 20190711
  5. METHOTREXATE. [Suspect]
     Active Substance: METHOTREXATE
     Indication: PRODUCT USED FOR UNKNOWN INDICATION
     Route: 065
  6. HIXIZINE [Concomitant]
     Active Substance: HYDROXYZINE HYDROCHLORIDE
     Indication: PRODUCT USED FOR UNKNOWN INDICATION
     Dosage: 100 MG, QD
     Route: 065

REACTIONS (13)
  - Scratch [Unknown]
  - Anxiety [Not Recovered/Not Resolved]
  - Urticaria [Not Recovered/Not Resolved]
  - Mobility decreased [Not Recovered/Not Resolved]
  - Skin plaque [Unknown]
  - Therapeutic response decreased [Not Recovered/Not Resolved]
  - Pruritus [Unknown]
  - Somnolence [Not Recovered/Not Resolved]
  - Micturition urgency [Not Recovered/Not Resolved]
  - Inappropriate schedule of product administration [Unknown]
  - Suicidal ideation [Not Recovered/Not Resolved]
  - Self-injurious ideation [Unknown]
  - Hypertension [Not Recovered/Not Resolved]

NARRATIVE: CASE EVENT DATE: 20190403
